FAERS Safety Report 7030728-9 (Version None)
Quarter: 2010Q4

REPORT INFORMATION
  Report Type: 
  Country: None (occurrence: None)
  Receive Date: 20101006
  Receipt Date: 20100924
  Transmission Date: 20110411
  Serious: Yes (Other)
  Sender: FDA-Public Use
  Company Number: CA-CELGENEUS-028-21880-10092550

PATIENT
  Sex: Male

DRUGS (2)
  1. REVLIMID [Suspect]
     Route: 048
     Dates: start: 20080301
  2. REVLIMID [Suspect]
     Route: 048
     Dates: start: 20100209

REACTIONS (3)
  - ACNE [None]
  - DIARRHOEA [None]
  - SKIN CANCER [None]
